FAERS Safety Report 8481249-8 (Version None)
Quarter: 2012Q3

REPORT INFORMATION
  Report Type: 
  Country: None (occurrence: None)
  Receive Date: 20120702
  Receipt Date: 20120627
  Transmission Date: 20120928
  Serious: Yes (Other)
  Sender: FDA-Public Use
  Company Number: MX-ABBOTT-12P-107-0940907-00

PATIENT
  Sex: Male
  Weight: 88.5 kg

DRUGS (3)
  1. ANTALGIN [Concomitant]
     Indication: ANKYLOSING SPONDYLITIS
     Route: 048
     Dates: start: 20090601
  2. ASPIRIN [Concomitant]
     Indication: PRODUCT USED FOR UNKNOWN INDICATION
     Dosage: 1 TAB/DAY, PRESCRIBED BY CARDIOLOGIST
     Route: 048
     Dates: start: 20080801
  3. HUMIRA [Suspect]
     Indication: ANKYLOSING SPONDYLITIS
     Route: 058
     Dates: start: 20090806

REACTIONS (7)
  - RETINAL DETACHMENT [None]
  - FOREIGN BODY IN EYE [None]
  - VISION BLURRED [None]
  - ARTHRALGIA [None]
  - BLOOD TRIGLYCERIDES INCREASED [None]
  - OCULAR DISCOMFORT [None]
  - VISUAL IMPAIRMENT [None]
